FAERS Safety Report 4973087-5 (Version None)
Quarter: 2006Q2

REPORT INFORMATION
  Report Type: 
  Country: None (occurrence: None)
  Receive Date: 20060414
  Receipt Date: 20051227
  Transmission Date: 20061013
  Serious: Yes (Other)
  Sender: FDA-Public Use
  Company Number: FR-ROCHE-430054

PATIENT
  Age: 35 Year
  Sex: Female

DRUGS (1)
  1. ROACCUTANE [Suspect]
     Indication: ACNE
     Route: 048
     Dates: start: 20051001, end: 20051010

REACTIONS (2)
  - NO ADVERSE EFFECT [None]
  - PREGNANCY [None]
